FAERS Safety Report 4299037-5 (Version None)
Quarter: 2004Q1

REPORT INFORMATION
  Report Type: 
  Country: None (occurrence: None)
  Receive Date: 20040217
  Receipt Date: 20040204
  Transmission Date: 20041129
  Serious: Yes (Other)
  Sender: FDA-Public Use
  Company Number: 200410045BCC

PATIENT
  Age: 82 Year
  Sex: Female
  Weight: 58.9676 kg

DRUGS (1)
  1. BAYER MUSCLE + JOINT CREAM (CAMPHOR/EUCALYPTUS/MENTHOL/METHYL SALICYLA [Suspect]
     Dosage: TOPICAL
     Route: 061
     Dates: start: 20030728

REACTIONS (1)
  - ASTHMA [None]
